FAERS Safety Report 5680231-3 (Version None)
Quarter: 2008Q1

REPORT INFORMATION
  Report Type: 
  Country: None (occurrence: None)
  Receive Date: 20080326
  Receipt Date: 20080314
  Transmission Date: 20080703
  Serious: Yes (Death, Other)
  Sender: FDA-Public Use
  Company Number: US-ELI_LILLY_AND_COMPANY-US200802003615

PATIENT
  Age: 86 Year
  Sex: Female

DRUGS (2)
  1. GEMZAR [Suspect]
     Indication: PANCREATIC CARCINOMA
     Dosage: 1600 MG, OTHER
     Route: 042
     Dates: start: 20071107, end: 20080102
  2. GEMZAR [Suspect]
     Dosage: OTHER; 800MG/M2
     Route: 042
     Dates: start: 20080102, end: 20080130

REACTIONS (3)
  - BLOOD COUNT ABNORMAL [None]
  - PULMONARY EMBOLISM [None]
  - PULMONARY TOXICITY [None]
